FAERS Safety Report 8924510 (Version 1)
Quarter: 2012Q4

REPORT INFORMATION
  Report Type: 
  Country: US (occurrence: None)
  Receive Date: 20121121
  Receipt Date: 20121121
  Transmission Date: 20130627
  Serious: Yes (Hospitalization)
  Sender: FDA-Public Use
  Company Number: None

PATIENT
  Sex: Female
  Weight: 84.3 kg

DRUGS (1)
  1. CETUXIMAB [Suspect]

REACTIONS (10)
  - Dehydration [None]
  - Tachycardia [None]
  - Hypotension [None]
  - Stomatitis [None]
  - Intertrigo candida [None]
  - Staphylococcus test positive [None]
  - Application site erythema [None]
  - Pyrexia [None]
  - Skin ulcer [None]
  - Purulent discharge [None]
